FAERS Safety Report 13599172 (Version 3)
Quarter: 2017Q3

REPORT INFORMATION
  Report Type: Report from Study
  Country: FR (occurrence: FR)
  Receive Date: 20170531
  Receipt Date: 20170703
  Transmission Date: 20171127
  Serious: Yes (Other)
  Sender: FDA-Public Use
  Company Number: FR-GILEAD-2017-0274326

PATIENT
  Age: 52 Year
  Sex: Male
  Weight: 47 kg

DRUGS (6)
  1. ZOLPIDEM [Concomitant]
     Active Substance: ZOLPIDEM\ZOLPIDEM TARTRATE
     Indication: SLEEP DISORDER
     Dosage: 10 MG, QD
     Dates: start: 2009
  2. SOFOSBUVIR [Suspect]
     Active Substance: SOFOSBUVIR
     Indication: CHRONIC HEPATITIS C
     Dosage: UNK
     Route: 065
     Dates: start: 20141027, end: 20150118
  3. SERESTA [Concomitant]
     Active Substance: OXAZEPAM
     Indication: ANXIOLYTIC THERAPY
     Dosage: 10 MG, QD
     Dates: start: 2012
  4. SIMEPREVIR [Suspect]
     Active Substance: SIMEPREVIR
     Indication: CHRONIC HEPATITIS C
     Dosage: UNK
     Route: 065
     Dates: start: 20141027, end: 20150118
  5. FUROSEMIDE. [Concomitant]
     Active Substance: FUROSEMIDE
     Indication: DIURETIC THERAPY
     Dosage: 40 MG, QD
     Dates: start: 2012
  6. KARDEGIC [Concomitant]
     Active Substance: ASPIRIN LYSINE
     Indication: ANTICOAGULANT THERAPY
     Dosage: 75 MG, QD
     Dates: start: 2012

REACTIONS (2)
  - Alcoholism [Unknown]
  - Gamma-glutamyltransferase abnormal [Unknown]

NARRATIVE: CASE EVENT DATE: 20170414
